FAERS Safety Report 14918624 (Version 2)
Quarter: 2018Q2

REPORT INFORMATION
  Report Type: Spontaneous
  Country: US (occurrence: US)
  Receive Date: 20180521
  Receipt Date: 20180522
  Transmission Date: 20180711
  Serious: No
  Sender: FDA-Public Use
  Company Number: US-PFIZER INC-2018200663

PATIENT
  Age: 58 Year
  Sex: Female
  Weight: 65.32 kg

DRUGS (2)
  1. EUCRISA [Suspect]
     Active Substance: CRISABOROLE
     Dosage: UNK, 2X/DAY
     Route: 061
  2. EUCRISA [Suspect]
     Active Substance: CRISABOROLE
     Indication: ECZEMA
     Dosage: UNK, AS NEEDED

REACTIONS (4)
  - Application site erythema [Unknown]
  - Pruritus [Unknown]
  - Application site pain [Unknown]
  - Product use issue [Unknown]
